FAERS Safety Report 5732613-9 (Version None)
Quarter: 2008Q2

REPORT INFORMATION
  Report Type: 
  Country: None (occurrence: None)
  Receive Date: 20080508
  Receipt Date: 20080430
  Transmission Date: 20081010
  Serious: Yes (Death, Hospitalization)
  Sender: FDA-Public Use
  Company Number: US-JNJFOC-20080500152

PATIENT
  Sex: Male

DRUGS (16)
  1. REMICADE [Suspect]
     Indication: RHEUMATOID ARTHRITIS
     Route: 042
  2. METHOTREXATE [Concomitant]
  3. REQUIP [Concomitant]
  4. ZETIA [Concomitant]
  5. AMBIEN [Concomitant]
  6. VERAPAMIL [Concomitant]
  7. METHYLPREDNISOLONE [Concomitant]
  8. ZOCOR [Concomitant]
  9. TICAR [Concomitant]
  10. ACEPHEX [Concomitant]
  11. LIPITOR [Concomitant]
  12. HYDROXYCHLOROQUINE SULFATE [Concomitant]
  13. FOLIC ACID [Concomitant]
  14. FLOGARD [Concomitant]
  15. IMBESOL [Concomitant]
  16. VOLTX [Concomitant]

REACTIONS (4)
  - HYPERTENSION [None]
  - HYPOTENSION [None]
  - SEPSIS [None]
  - SKIN DISCOLOURATION [None]
